FAERS Safety Report 20610665 (Version 14)
Quarter: 2022Q3

REPORT INFORMATION
  Report Type: Report from Study
  Country: GB (occurrence: None)
  Receive Date: 20220318
  Receipt Date: 20220828
  Transmission Date: 20221026
  Serious: Yes (Hospitalization)
  Sender: FDA-Public Use
  Company Number: GB-ROCHE-3046849

PATIENT
  Age: 55 Year
  Sex: Female
  Weight: 100.4 kg

DRUGS (60)
  1. ATEZOLIZUMAB [Suspect]
     Active Substance: ATEZOLIZUMAB
     Indication: HER2 positive breast cancer
     Route: 041
     Dates: start: 20220223
  2. ADO-TRASTUZUMAB EMTANSINE [Suspect]
     Active Substance: ADO-TRASTUZUMAB EMTANSINE
     Indication: HER2 positive breast cancer
     Dosage: ON 19/APR/2022, SHE RECEIVED MOST RECENT DOSE OF 330 MG OF TRASTUZUMAB EMTANSINE (IV) ADVERSE EVENT
     Route: 042
     Dates: start: 20220223, end: 20220420
  3. ANASTROZOLE [Concomitant]
     Active Substance: ANASTROZOLE
     Indication: Breast cancer
     Route: 048
     Dates: start: 20220119
  4. RAMIPRIL [Concomitant]
     Active Substance: RAMIPRIL
     Indication: Hypertension
     Route: 065
     Dates: start: 20160407
  5. OMEPRAZOLE [Concomitant]
     Active Substance: OMEPRAZOLE
     Indication: Hernia
     Dates: start: 20210709, end: 20220305
  6. OMEPRAZOLE [Concomitant]
     Active Substance: OMEPRAZOLE
     Indication: Gastrooesophageal reflux disease
     Route: 065
     Dates: start: 20220306
  7. OMEPRAZOLE [Concomitant]
     Active Substance: OMEPRAZOLE
     Route: 065
     Dates: start: 20121208
  8. AMOXICILLIN [Concomitant]
     Active Substance: AMOXICILLIN
     Indication: Infection
     Dates: start: 20220307, end: 20220309
  9. ACETAMINOPHEN [Concomitant]
     Active Substance: ACETAMINOPHEN
     Indication: Pain
     Route: 065
     Dates: start: 20220306
  10. ONDANSETRON [Concomitant]
     Active Substance: ONDANSETRON
     Indication: Nausea
     Route: 065
     Dates: start: 20220306
  11. ONDANSETRON [Concomitant]
     Active Substance: ONDANSETRON
     Indication: Vomiting
  12. ANASTROZOLE [Concomitant]
     Active Substance: ANASTROZOLE
     Indication: Breast cancer
     Route: 048
     Dates: start: 20220119
  13. LEVOFLOXACIN [Concomitant]
     Active Substance: LEVOFLOXACIN
     Indication: Infection
     Dates: start: 20220309, end: 20220310
  14. MORPHINE [Concomitant]
     Active Substance: MORPHINE
     Indication: Pain
     Route: 065
     Dates: start: 20220312, end: 20220320
  15. MORPHINE [Concomitant]
     Active Substance: MORPHINE
     Dates: start: 20220317, end: 20220320
  16. MORPHINE [Concomitant]
     Active Substance: MORPHINE
     Route: 065
     Dates: start: 20220324
  17. CYCLIZINE [Concomitant]
     Active Substance: CYCLIZINE
     Indication: Nausea
     Route: 065
     Dates: start: 20220310, end: 20220520
  18. CYCLIZINE [Concomitant]
     Active Substance: CYCLIZINE
     Indication: Vomiting
  19. AMITRIPTYLINE [Concomitant]
     Active Substance: AMITRIPTYLINE
     Indication: Pain
     Route: 065
     Dates: start: 20220319, end: 20220328
  20. AMITRIPTYLINE [Concomitant]
     Active Substance: AMITRIPTYLINE
     Route: 065
     Dates: start: 20220405, end: 20220529
  21. LEVOTHYROXINE [Concomitant]
     Active Substance: LEVOTHYROXINE
     Indication: Hypothyroidism
     Route: 065
     Dates: start: 20220317
  22. MORPHINE SULFATE [Concomitant]
     Active Substance: MORPHINE SULFATE
     Indication: Pain
     Route: 065
     Dates: start: 20220310, end: 20220322
  23. MORPHINE SULFATE [Concomitant]
     Active Substance: MORPHINE SULFATE
     Route: 065
     Dates: start: 20220323
  24. POLYETHYLENE GLYCOL 3350\POTASSIUM CHLORIDE\SODIUM BICARBONATE\SODIUM [Concomitant]
     Active Substance: POLYETHYLENE GLYCOL 3350\POTASSIUM CHLORIDE\SODIUM BICARBONATE\SODIUM CHLORIDE
     Indication: Constipation
     Route: 065
     Dates: start: 20220310
  25. BISOPROLOL [Concomitant]
     Active Substance: BISOPROLOL
     Indication: Supraventricular tachycardia
     Route: 065
     Dates: start: 20220325, end: 20220325
  26. BISOPROLOL [Concomitant]
     Active Substance: BISOPROLOL
     Indication: Cardiac disorder
     Route: 065
     Dates: start: 20220517, end: 20220517
  27. FLUCLOXACILLIN [Concomitant]
     Active Substance: FLUCLOXACILLIN
     Indication: Infection
     Dates: start: 20220325, end: 20220328
  28. FLUCLOXACILLIN [Concomitant]
     Active Substance: FLUCLOXACILLIN
     Dates: start: 20220328, end: 20220331
  29. METOCLOPRAMIDE [Concomitant]
     Active Substance: METOCLOPRAMIDE
     Indication: Nausea
     Route: 065
     Dates: start: 20220401, end: 20220401
  30. METOCLOPRAMIDE [Concomitant]
     Active Substance: METOCLOPRAMIDE
     Indication: Vomiting
  31. SENNA [Concomitant]
     Active Substance: SENNA LEAF\SENNOSIDES\SENNOSIDES A AND B
     Indication: Constipation
     Route: 065
     Dates: start: 20220310
  32. MORPHINE SULFATE [Concomitant]
     Active Substance: MORPHINE SULFATE
     Indication: Pain
     Route: 065
     Dates: start: 20220324, end: 20220529
  33. PREDNISOLONE [Concomitant]
     Active Substance: PREDNISOLONE
     Indication: Headache
     Route: 048
     Dates: start: 20220420, end: 20220421
  34. PREDNISOLONE [Concomitant]
     Active Substance: PREDNISOLONE
     Route: 048
     Dates: start: 20220422, end: 20220423
  35. PREDNISOLONE [Concomitant]
     Active Substance: PREDNISOLONE
     Route: 048
     Dates: start: 20220424, end: 20220425
  36. PREDNISOLONE [Concomitant]
     Active Substance: PREDNISOLONE
     Route: 048
     Dates: start: 20220426, end: 20220427
  37. PREDNISOLONE [Concomitant]
     Active Substance: PREDNISOLONE
     Route: 048
     Dates: start: 20220428, end: 20220429
  38. PREDNISOLONE [Concomitant]
     Active Substance: PREDNISOLONE
     Route: 048
     Dates: start: 20220418, end: 20220429
  39. PREDNISOLONE [Concomitant]
     Active Substance: PREDNISOLONE
     Route: 048
     Dates: start: 20220407, end: 20220411
  40. PREDNISOLONE [Concomitant]
     Active Substance: PREDNISOLONE
     Route: 048
     Dates: start: 20220412, end: 20220413
  41. PREDNISOLONE [Concomitant]
     Active Substance: PREDNISOLONE
     Route: 048
     Dates: start: 20220414, end: 20220415
  42. PREDNISOLONE [Concomitant]
     Active Substance: PREDNISOLONE
     Route: 048
     Dates: start: 20220416, end: 20220417
  43. PREDNISOLONE [Concomitant]
     Active Substance: PREDNISOLONE
     Route: 048
     Dates: start: 20220418, end: 20220419
  44. PREDNISOLONE [Concomitant]
     Active Substance: PREDNISOLONE
     Route: 048
     Dates: start: 20220420, end: 20220421
  45. PREDNISOLONE [Concomitant]
     Active Substance: PREDNISOLONE
     Route: 048
     Dates: start: 20220422, end: 20220423
  46. PREDNISOLONE [Concomitant]
     Active Substance: PREDNISOLONE
     Route: 048
     Dates: start: 20220424, end: 20220425
  47. PREDNISOLONE [Concomitant]
     Active Substance: PREDNISOLONE
     Route: 048
     Dates: start: 20220426, end: 20220427
  48. PREDNISOLONE [Concomitant]
     Active Substance: PREDNISOLONE
     Route: 048
     Dates: start: 20220428, end: 20220429
  49. CHLORPHENIRAMINE MALEATE [Concomitant]
     Active Substance: CHLORPHENIRAMINE MALEATE
     Indication: Rash
     Route: 065
     Dates: start: 20220518, end: 20220523
  50. PIPERACILLIN SODIUM\TAZOBACTAM SODIUM [Concomitant]
     Active Substance: PIPERACILLIN SODIUM\TAZOBACTAM SODIUM
     Indication: Infection
     Route: 065
     Dates: start: 20220509, end: 20220509
  51. LINEZOLID [Concomitant]
     Active Substance: LINEZOLID
     Indication: Skin lesion
     Route: 065
     Dates: start: 20220519, end: 20220523
  52. CLOBETASOL [Concomitant]
     Active Substance: CLOBETASOL
     Indication: Skin lesion
     Route: 065
     Dates: start: 20220517, end: 20220519
  53. PEPTAC (UNITED KINGDOM) [Concomitant]
     Indication: Gastrooesophageal reflux disease
     Route: 065
     Dates: start: 20220509, end: 20220509
  54. ALTEPLASE [Concomitant]
     Active Substance: ALTEPLASE
     Indication: Supraventricular tachycardia
     Dates: start: 20220505, end: 20220505
  55. DOMPERIDONE [Concomitant]
     Active Substance: DOMPERIDONE
     Indication: Hernia
     Dates: start: 20210709, end: 20220317
  56. CEFTRIAXONE [Concomitant]
     Active Substance: CEFTRIAXONE
     Dates: start: 20220306, end: 20220322
  57. PREGABALIN [Concomitant]
     Active Substance: PREGABALIN
     Indication: Pain
     Route: 065
     Dates: start: 20220325, end: 20220529
  58. MORPHINE SULFATE [Concomitant]
     Active Substance: MORPHINE SULFATE
     Indication: Pain
     Dates: start: 20220323
  59. AMITRIPTYLINE [Concomitant]
     Active Substance: AMITRIPTYLINE
     Indication: Pain
     Dates: start: 20220405, end: 20220529
  60. THYROXINE [Concomitant]
     Active Substance: LEVOTHYROXINE
     Indication: Hypothyroidism
     Dates: start: 20121208

REACTIONS (8)
  - Fatigue [Not Recovered/Not Resolved]
  - Headache [Recovered/Resolved]
  - Arthralgia [Recovered/Resolved]
  - Staphylococcal infection [Recovered/Resolved]
  - Vomiting [Recovered/Resolved]
  - Status migrainosus [Recovered/Resolved]
  - Pyrexia [Recovered/Resolved]
  - Vascular access site infection [Recovered/Resolved]

NARRATIVE: CASE EVENT DATE: 20220306
